FAERS Safety Report 4340288-9 (Version None)
Quarter: 2004Q2

REPORT INFORMATION
  Report Type: 
  Country: None (occurrence: None)
  Receive Date: 20040412
  Receipt Date: 20040401
  Transmission Date: 20050107
  Serious: Yes (Hospitalization)
  Sender: FDA-Public Use
  Company Number: 205639

PATIENT
  Age: 55 Year
  Sex: Female

DRUGS (10)
  1. HERCEPTIN [Suspect]
     Indication: BREAST CANCER
     Dosage: 336 MG, SINGLE , INTRAVENOUS  : 2 MG/KG, INTRAVENOUS
     Route: 042
     Dates: start: 20040316, end: 20040316
  2. DOCETAXEL(DOCETAXEL) [Suspect]
     Indication: BREAST CANCER
     Dosage: 195 MG, INTRAVENOUS
     Route: 042
  3. PROMETHEZINE HCL [Concomitant]
  4. MENOFLUSH [Concomitant]
  5. MORPHINE SYRUP (MORPHINE SULFATE) [Concomitant]
  6. MOUTH RINSE (MOUTHWASH NOS) [Concomitant]
  7. PARENTERAL NUTRITION (HYPERALIMENTATION) [Concomitant]
  8. BUSCOPAN (SCOPOLAMINE BUTYLBROMIDE) [Concomitant]
  9. MORPHINE [Concomitant]
  10. MAXOLON [Concomitant]

REACTIONS (6)
  - ABDOMINAL PAIN [None]
  - FEBRILE NEUTROPENIA [None]
  - MUCOSAL INFLAMMATION [None]
  - NEUTROPENIC INFECTION [None]
  - PAIN [None]
  - RASH [None]
